FAERS Safety Report 11692434 (Version 1)
Quarter: 2015Q4

REPORT INFORMATION
  Report Type: Spontaneous
  Country: US (occurrence: None)
  Receive Date: 20151102
  Receipt Date: 20151102
  Transmission Date: 20160304
  Serious: No
  Sender: FDA-Public Use
  Company Number: None

PATIENT
  Sex: Female

DRUGS (4)
  1. XARELTO [Concomitant]
     Active Substance: RIVAROXABAN
  2. CARB/LEVO [Concomitant]
     Active Substance: CARBIDOPA\LEVODOPA
  3. PROMACTA [Suspect]
     Active Substance: ELTROMBOPAG OLAMINE
     Route: 048
     Dates: start: 20150929
  4. VENLAFAXINE [Concomitant]
     Active Substance: VENLAFAXINE HYDROCHLORIDE

REACTIONS (2)
  - Drug dose omission [None]
  - Memory impairment [None]
